FAERS Safety Report 12716780 (Version 1)
Quarter: 2016Q3

REPORT INFORMATION
  Report Type: Spontaneous
  Country: US (occurrence: US)
  Receive Date: 20160906
  Receipt Date: 20160906
  Transmission Date: 20161109
  Serious: Yes (Other)
  Sender: FDA-Public Use
  Company Number: None

PATIENT
  Age: 72 Year
  Sex: Female
  Weight: 101.25 kg

DRUGS (14)
  1. VITAMIN D3 [Concomitant]
     Active Substance: CHOLECALCIFEROL
  2. CALCIUM MAGNESIUM W/VITAMIN D COMPLEX [Concomitant]
  3. ROSE HIPS [Concomitant]
  4. VITAMIN B12 [Concomitant]
     Active Substance: CYANOCOBALAMIN
  5. BIOSIL [Concomitant]
  6. BAYER ASPIRIN [Concomitant]
     Active Substance: ASPIRIN
  7. BIOTIN [Concomitant]
     Active Substance: BIOTIN
  8. VITAMIN C [Concomitant]
     Active Substance: ASCORBIC ACID
  9. LISINOPRIL-HCTZ [Concomitant]
     Active Substance: HYDROCHLOROTHIAZIDE\LISINOPRIL
  10. AMLODIPINE BESYLATE 5MG CAMBER [Suspect]
     Active Substance: AMLODIPINE BESYLATE
     Indication: BLOOD PRESSURE MEASUREMENT
  11. VITAMIN D [Concomitant]
     Active Substance: CHOLECALCIFEROL
  12. ATORVASTATIN MYLAN [Suspect]
     Active Substance: ATORVASTATIN
     Indication: BLOOD PRESSURE MEASUREMENT
     Route: 048
     Dates: start: 20100101
  13. ATORVASTATIN MYLAN [Suspect]
     Active Substance: ATORVASTATIN
     Indication: BLOOD CHOLESTEROL
     Route: 048
     Dates: start: 20100101
  14. CITRUS BIOFLAVONOID COMPLEX\GRAPE SEED EXTRACT. [Concomitant]
     Active Substance: CITRUS BIOFLAVONOID COMPLEX\GRAPE SEED EXTRACT

REACTIONS (10)
  - Tinnitus [None]
  - Deafness [None]
  - Pain [None]
  - Somnolence [None]
  - Urine output increased [None]
  - Paraesthesia [None]
  - Tremor [None]
  - Insomnia [None]
  - Nocturia [None]
  - Alopecia [None]

NARRATIVE: CASE EVENT DATE: 20100101
